FAERS Safety Report 6505308-1 (Version None)
Quarter: 2009Q4

REPORT INFORMATION
  Report Type: 
  Country: None (occurrence: None)
  Receive Date: 20091218
  Receipt Date: 20091208
  Transmission Date: 20100525
  Serious: Yes (Hospitalization)
  Sender: FDA-Public Use
  Company Number: FR-CELGENEUS-056-C5013-09120680

PATIENT
  Sex: Female

DRUGS (16)
  1. THALIDOMIDE [Suspect]
     Indication: MULTIPLE MYELOMA
     Route: 048
     Dates: start: 20091125
  2. THALIDOMIDE [Suspect]
     Route: 048
     Dates: start: 20090103, end: 20091001
  3. MELPHALAN [Suspect]
     Indication: MULTIPLE MYELOMA
     Route: 065
     Dates: start: 20091125
  4. MELPHALAN [Suspect]
     Route: 065
     Dates: start: 20090103, end: 20091001
  5. PREDNISONE [Suspect]
     Indication: MULTIPLE MYELOMA
     Route: 065
     Dates: start: 20091125
  6. PREDNISONE [Suspect]
     Route: 065
     Dates: start: 20090103, end: 20091001
  7. CLASTOBAN [Concomitant]
     Indication: PROPHYLAXIS
     Route: 048
  8. KARDEGIC [Concomitant]
     Indication: DRUG USE FOR UNKNOWN INDICATION
     Route: 065
  9. OXYCONTIN [Concomitant]
     Indication: DRUG USE FOR UNKNOWN INDICATION
     Route: 065
  10. OXYNORM [Concomitant]
     Indication: DRUG USE FOR UNKNOWN INDICATION
     Dosage: 1-3/DAY
     Route: 065
  11. MYOLASTAN [Concomitant]
     Route: 048
     Dates: start: 20080101
  12. MOTILIUM [Concomitant]
     Route: 048
     Dates: start: 20080101
  13. PARACETAMOL [Concomitant]
     Indication: BACK PAIN
     Route: 048
     Dates: start: 20080101
  14. PRIMPERAN TAB [Concomitant]
     Route: 048
     Dates: start: 20081212
  15. ELUDRIL [Concomitant]
     Indication: DRY MOUTH
     Route: 002
     Dates: start: 20081212
  16. FORLAX [Concomitant]
     Indication: DRUG USE FOR UNKNOWN INDICATION
     Route: 065

REACTIONS (2)
  - CHEST PAIN [None]
  - DYSURIA [None]
